FAERS Safety Report 9356368 (Version 2)
Quarter: 2013Q2

REPORT INFORMATION
  Report Type: Spontaneous
  Country: US (occurrence: None)
  Receive Date: 20130614
  Receipt Date: 20130625
  Transmission Date: 20140414
  Serious: Yes (Other)
  Sender: FDA-Public Use
  Company Number: 2013US001715

PATIENT
  Age: 55 Year
  Sex: Male
  Weight: 78 kg

DRUGS (2)
  1. ICLUSIG [Suspect]
     Indication: CHRONIC MYELOID LEUKAEMIA
     Route: 048
     Dates: start: 20130501, end: 20130515
  2. ICLUSIG [Suspect]
     Indication: ACUTE LYMPHOCYTIC LEUKAEMIA
     Route: 048
     Dates: start: 20130501, end: 20130515

REACTIONS (6)
  - Heart rate decreased [None]
  - Red blood cell count decreased [None]
  - Platelet count decreased [None]
  - Adverse drug reaction [None]
  - Body temperature increased [None]
  - Hepatic enzyme increased [None]
